FAERS Safety Report 19708218 (Version 1)
Quarter: 2021Q3

REPORT INFORMATION
  Report Type: Spontaneous
  Country: ES (occurrence: ES)
  Receive Date: 20210816
  Receipt Date: 20210816
  Transmission Date: 20211014
  Serious: Yes (Other)
  Sender: FDA-Public Use
  Company Number: NVSC2021ES177647

PATIENT
  Age: 61 Year
  Sex: Male

DRUGS (1)
  1. COSENTYX [Suspect]
     Active Substance: SECUKINUMAB
     Indication: PSORIATIC ARTHROPATHY
     Dosage: 150 MG, Q4W (4 SEMANAS)
     Route: 058
     Dates: start: 20200630, end: 20210719

REACTIONS (5)
  - Lymphoproliferative disorder [Unknown]
  - Splenomegaly [Unknown]
  - Hypercalcaemia [Unknown]
  - Weight decreased [Unknown]
  - Malignant lymphoid neoplasm [Unknown]

NARRATIVE: CASE EVENT DATE: 20210610
